FAERS Safety Report 9820390 (Version 1)
Quarter: 2013Q4

REPORT INFORMATION
  Report Type: Spontaneous
  Country: US (occurrence: None)
  Receive Date: 20131223
  Receipt Date: 20131223
  Transmission Date: 20140711
  Serious: No
  Sender: FDA-Public Use
  Company Number: 221340

PATIENT
  Age: 74 Year
  Sex: Female

DRUGS (3)
  1. PICATO [Suspect]
     Indication: SKIN DISORDER
     Dosage: FOR 3 DAYS, TOPICAL
     Route: 061
     Dates: start: 20130412, end: 20130414
  2. PRILOSEC (OMEPRAZOLE) (20 MG) [Concomitant]
  3. ALLERGY SHOTS [Concomitant]

REACTIONS (3)
  - Eye swelling [None]
  - Eye swelling [None]
  - Drug administered at inappropriate site [None]
